FAERS Safety Report 5812159-X (Version None)
Quarter: 2008Q3

REPORT INFORMATION
  Report Type: 
  Country: None (occurrence: None)
  Receive Date: 20080716
  Receipt Date: 20080710
  Transmission Date: 20090109
  Serious: Yes (Life-Threatening)
  Sender: FDA-Public Use
  Company Number: BE-AMGEN-US273373

PATIENT
  Age: 53 Year
  Sex: Female
  Weight: 83 kg

DRUGS (10)
  1. ENBREL [Suspect]
     Indication: PSORIASIS
     Route: 058
     Dates: start: 20070601
  2. ENBREL [Suspect]
     Dosage: NOT PROVIDED
     Route: 058
     Dates: start: 20080101
  3. ZANTAC [Concomitant]
     Route: 048
  4. LAXOBERON [Concomitant]
     Dosage: 5 DROPS
     Route: 048
  5. ZESTRIL [Concomitant]
     Route: 048
  6. CARVEDILOL [Concomitant]
     Route: 048
  7. CIPRAMIL [Concomitant]
     Route: 048
  8. CORDARONE [Concomitant]
     Route: 048
  9. ACETYLSALICYLIC ACID SRT [Concomitant]
     Route: 065
  10. BURINEX [Concomitant]
     Route: 065

REACTIONS (2)
  - ARRHYTHMIA [None]
  - CARDIAC ARREST [None]
